FAERS Safety Report 10969237 (Version 2)
Quarter: 2015Q2

REPORT INFORMATION
  Report Type: Not Available
  Country: JP (occurrence: JP)
  Receive Date: 20150331
  Receipt Date: 20150508
  Transmission Date: 20150821
  Serious: No
  Sender: FDA-Public Use
  Company Number: JP-LUPIN PHARMACEUTICALS INC.-2015-00832

PATIENT
  Sex: Male
  Weight: 42 kg

DRUGS (16)
  1. CLARITHROMYCIN. [Concomitant]
     Active Substance: CLARITHROMYCIN
     Indication: NASOPHARYNGITIS
     Route: 065
     Dates: start: 20130425
  2. THEOPHYLLINE [Concomitant]
     Active Substance: THEOPHYLLINE ANHYDROUS
     Indication: NASOPHARYNGITIS
     Route: 065
     Dates: start: 20130425
  3. APRICOT KERNEL WATER [Concomitant]
     Active Substance: HERBALS
     Indication: NASOPHARYNGITIS
     Route: 065
     Dates: start: 20130425
  4. PRAVASTATIN NA TABLET 5 MG ^AMEL^ [Suspect]
     Active Substance: PRAVASTATIN SODIUM
     Dosage: 5 MG
     Route: 048
     Dates: start: 20130530, end: 20130808
  5. OPISEZOL A [Concomitant]
     Indication: NASOPHARYNGITIS
     Route: 065
     Dates: start: 20130425
  6. ACETAMINOPHEN. [Concomitant]
     Active Substance: ACETAMINOPHEN
     Indication: NASOPHARYNGITIS
     Route: 065
     Dates: start: 20130528
  7. AMBROXOL [Concomitant]
     Active Substance: AMBROXOL
     Indication: NASOPHARYNGITIS
     Route: 065
     Dates: start: 20130425
  8. LEVOFLOXACIN. [Concomitant]
     Active Substance: LEVOFLOXACIN
     Indication: NASOPHARYNGITIS
     Route: 065
     Dates: start: 20130528
  9. BENPROPERINE [Concomitant]
     Active Substance: BENPROPERINE
     Indication: NASOPHARYNGITIS
     Route: 065
     Dates: start: 20130528
  10. AMLODIPINE [Concomitant]
     Active Substance: AMLODIPINE BESYLATE
     Indication: PRODUCT USED FOR UNKNOWN INDICATION
     Route: 065
  11. ASPIRIN. [Concomitant]
     Active Substance: ASPIRIN
     Indication: PRODUCT USED FOR UNKNOWN INDICATION
     Route: 065
  12. PRAVASTATIN NA TABLET 5 MG ^AMEL^ [Suspect]
     Active Substance: PRAVASTATIN SODIUM
     Indication: DYSLIPIDAEMIA
     Dosage: 10 MG DAILY
     Route: 048
     Dates: start: 20130425, end: 20130530
  13. PL [Concomitant]
     Active Substance: ACETAMINOPHEN\CAFFEINE\PROMETHAZINE\SALICYLAMIDE
     Indication: NASOPHARYNGITIS
     Route: 065
     Dates: start: 20130528
  14. SITAGLIPTIN [Concomitant]
     Active Substance: SITAGLIPTIN
     Indication: PRODUCT USED FOR UNKNOWN INDICATION
     Route: 065
  15. NAFTOPIDIL [Concomitant]
     Active Substance: NAFTOPIDIL
     Indication: PRODUCT USED FOR UNKNOWN INDICATION
     Route: 065
  16. SENEGA AND PLATYCODON MIXTURE [Concomitant]
     Indication: NASOPHARYNGITIS
     Route: 065
     Dates: start: 20130425

REACTIONS (1)
  - Blood creatine phosphokinase increased [Recovered/Resolved]

NARRATIVE: CASE EVENT DATE: 201305
